FAERS Safety Report 11831685 (Version 1)
Quarter: 2015Q4

REPORT INFORMATION
  Report Type: Spontaneous
  Country: US (occurrence: None)
  Receive Date: 20151211
  Receipt Date: 20151211
  Transmission Date: 20160305
  Serious: No
  Sender: FDA-Public Use
  Company Number: None

PATIENT
  Age: 46 Year
  Sex: Female
  Weight: 63.5 kg

DRUGS (7)
  1. PROCHLORPERAZINE. [Concomitant]
     Active Substance: PROCHLORPERAZINE
  2. MULTIVITAMIN [Concomitant]
     Active Substance: VITAMINS
  3. COLCHICINE 0.6 MG GENERIC [Suspect]
     Active Substance: COLCHICINE
     Indication: PERICARDITIS
     Dosage: 1 PILL ONCE DAILY TAKEN BY MOUTH
     Route: 048
  4. MAGNESIUM [Concomitant]
     Active Substance: MAGNESIUM
  5. FLORJEN3 PROBIOTIC [Concomitant]
  6. NEXIUM [Concomitant]
     Active Substance: ESOMEPRAZOLE MAGNESIUM
  7. VITAMIN D [Concomitant]
     Active Substance: CHOLECALCIFEROL

REACTIONS (6)
  - Faeces soft [None]
  - Feeling hot [None]
  - Insomnia [None]
  - Muscle twitching [None]
  - Nausea [None]
  - Tremor [None]

NARRATIVE: CASE EVENT DATE: 20151210
